FAERS Safety Report 19037188 (Version 2)
Quarter: 2021Q2

REPORT INFORMATION
  Report Type: Spontaneous
  Country: US (occurrence: US)
  Receive Date: 20210322
  Receipt Date: 20210406
  Transmission Date: 20210717
  Serious: No
  Sender: FDA-Public Use
  Company Number: US-AMGEN-USA-20191108103

PATIENT
  Sex: Male

DRUGS (4)
  1. DUPILUMAB [Concomitant]
     Active Substance: DUPILUMAB
     Indication: DERMATITIS ATOPIC
     Dosage: 600 MILLIGRAM, QWK (EVERY OTHER WEEK)
     Route: 058
     Dates: start: 2019
  2. DUPILUMAB [Concomitant]
     Active Substance: DUPILUMAB
     Dosage: 300 MILLIGRAM, QWK (EVERY OTHER WEEK)
     Route: 058
     Dates: start: 20200428
  3. TYMLOS [Concomitant]
     Active Substance: ABALOPARATIDE
     Dosage: UNK
  4. OTEZLA [Suspect]
     Active Substance: APREMILAST
     Indication: PSORIASIS
     Dosage: 30 MILLIGRAM, BID
     Route: 048
     Dates: start: 2016

REACTIONS (6)
  - Dry skin [Not Recovered/Not Resolved]
  - Therapeutic product effect decreased [Unknown]
  - Psoriasis [Not Recovered/Not Resolved]
  - Skin papilloma [Unknown]
  - Skin burning sensation [Not Recovered/Not Resolved]
  - Adverse drug reaction [Unknown]
